FAERS Safety Report 9773850 (Version 2)
Quarter: 2013Q4

REPORT INFORMATION
  Report Type: Spontaneous
  Country: DK (occurrence: DK)
  Receive Date: 20131220
  Receipt Date: 20131220
  Transmission Date: 20140711
  Serious: Yes (Disabling)
  Sender: FDA-Public Use
  Company Number: DK-GE HEALTHCARE MEDICAL DIAGNOSTICS-OSCN-NO-0903S-0173

PATIENT
  Age: 56 Year
  Sex: Female
  Weight: 50 kg

DRUGS (11)
  1. OMNISCAN [Suspect]
     Indication: TRANSPLANT EVALUATION
     Route: 042
     Dates: start: 20051208, end: 20051208
  2. MAGNEVIST [Suspect]
     Indication: PRODUCT USED FOR UNKNOWN INDICATION
     Route: 014
     Dates: start: 20050511, end: 20050511
  3. NEORECORMON [Concomitant]
  4. IMUREL [Concomitant]
  5. SANDIMMUN [Concomitant]
  6. LOMIR [Concomitant]
  7. DIURAL [Concomitant]
  8. SELOZOK [Concomitant]
  9. WARFARIN [Concomitant]
  10. EPREX [Concomitant]
  11. DEPAKOTE [Concomitant]

REACTIONS (1)
  - Nephrogenic systemic fibrosis [Not Recovered/Not Resolved]
